FAERS Safety Report 10431910 (Version 3)
Quarter: 2015Q3

REPORT INFORMATION
  Report Type: Spontaneous
  Country: JP (occurrence: JP)
  Receive Date: 20140905
  Receipt Date: 20150728
  Transmission Date: 20151125
  Serious: Yes (Death, Other)
  Sender: FDA-Public Use
  Company Number: JP-PFIZER INC-2014137819

PATIENT
  Age: 66 Year
  Sex: Female
  Weight: 61 kg

DRUGS (37)
  1. ALOXI [Concomitant]
     Active Substance: PALONOSETRON HYDROCHLORIDE
     Dosage: UNK
     Dates: start: 20140117, end: 20140117
  2. URDENACIN [Concomitant]
     Dosage: UNK
     Dates: start: 20140117, end: 20140119
  3. RED BLOOD CELLS, CONCENTRATED [Concomitant]
     Active Substance: HUMAN RED BLOOD CELL
     Dosage: UNK
     Dates: start: 20140127, end: 20140127
  4. CAMPTO [Suspect]
     Active Substance: IRINOTECAN
     Indication: PANCREATIC CARCINOMA METASTATIC
     Dosage: 180 MG, 1X/DAY (111.7 MG/M2)
     Route: 041
     Dates: start: 20140117, end: 20140117
  5. LOXOPROFEN [Concomitant]
     Active Substance: LOXOPROFEN
     Dosage: UNK
     Dates: start: 20140119, end: 20140124
  6. SANGLOPOR [Concomitant]
     Active Substance: HUMAN IMMUNOGLOBULIN G
     Dosage: UNK
     Dates: start: 20140126, end: 20140128
  7. ROPION [Concomitant]
     Active Substance: FLURBIPROFEN AXETIL
     Dosage: UNK
     Dates: start: 20140126, end: 20140127
  8. MIRACLID [Concomitant]
     Active Substance: ULINASTATIN
     Dosage: UNK
     Dates: start: 20140129, end: 20140131
  9. HANP [Concomitant]
     Active Substance: CARPERITIDE
     Dosage: UNK
     Dates: start: 20140129, end: 20140130
  10. ELPLAT [Suspect]
     Active Substance: OXALIPLATIN
     Indication: PANCREATIC CARCINOMA METASTATIC
     Dosage: 130 MG, 1X/DAY (80.7 MG/M2)
     Route: 041
     Dates: start: 20140117, end: 20140117
  11. LEVOFOLINATE YAKULT [Suspect]
     Active Substance: LEVOLEUCOVORIN CALCIUM
     Indication: PANCREATIC CARCINOMA METASTATIC
     Dosage: 320 MG DAILY (198.6 MG/M2)
     Route: 041
     Dates: start: 20140117, end: 20140117
  12. DEXART [Concomitant]
     Active Substance: DEXAMETHASONE SODIUM PHOSPHATE
     Dosage: UNK
     Dates: start: 20140117, end: 20140125
  13. SOLDOL E [Concomitant]
     Dosage: UNK
     Dates: start: 20140117, end: 20140119
  14. NOVAMIN [Concomitant]
     Active Substance: PROCHLORPERAZINE MALEATE
     Dosage: UNK
     Dates: start: 20140123, end: 20140124
  15. ATARAX-P [Concomitant]
     Active Substance: HYDROXYZINE HYDROCHLORIDE
     Dosage: UNK
     Dates: start: 20140125, end: 20140125
  16. 5-FU [Suspect]
     Active Substance: FLUOROURACIL
     Indication: PANCREATIC CARCINOMA METASTATIC
     Dosage: 3800 MG, D1-2 (2358.8 MG/M2/D1-2)
     Route: 041
     Dates: start: 20140117, end: 20140117
  17. BUSCOPAN [Concomitant]
     Active Substance: BUTYLSCOPOLAMINE BROMIDE
     Dosage: UNK
     Dates: start: 20140117, end: 20140117
  18. PRIMPERAN [Concomitant]
     Active Substance: METOCLOPRAMIDE HYDROCHLORIDE
     Dosage: UNK
     Dates: start: 20140120, end: 20140125
  19. GRAN [Concomitant]
     Active Substance: FILGRASTIM
     Dosage: UNK
     Dates: start: 20140125, end: 20140128
  20. FINIBAX [Concomitant]
     Active Substance: DORIPENEM MONOHYDRATE
     Dosage: UNK
     Dates: start: 20140127, end: 20140201
  21. NOVAMIN [Concomitant]
     Active Substance: PROCHLORPERAZINE MALEATE
     Dosage: UNK
     Dates: start: 20140117, end: 20140125
  22. NOVOLIN R [Concomitant]
     Active Substance: INSULIN HUMAN
     Dosage: UNK
     Dates: start: 20140117, end: 20140119
  23. MAGLAX [Concomitant]
     Active Substance: MAGNESIUM OXIDE
     Dosage: UNK
     Dates: start: 20140118
  24. SANDOSTATIN [Concomitant]
     Active Substance: OCTREOTIDE ACETATE
     Dosage: UNK
     Dates: start: 20140127, end: 20140201
  25. LASIX [Concomitant]
     Active Substance: FUROSEMIDE
     Dosage: UNK
     Dates: start: 20140127
  26. DALACIN-S [Concomitant]
     Active Substance: CLINDAMYCIN\CLINDAMYCIN PHOSPHATE
     Dosage: UNK
     Dates: start: 20140130, end: 20140201
  27. MYSLEE [Concomitant]
     Active Substance: ZOLPIDEM TARTRATE
     Dosage: UNK
     Dates: start: 20140125, end: 20140125
  28. PARIET [Concomitant]
     Active Substance: RABEPRAZOLE SODIUM
     Dosage: UNK
     Dates: start: 20140120
  29. TELEMINSOFT [Concomitant]
     Dosage: UNK
     Dates: start: 20140121, end: 20140121
  30. SOLANAX [Concomitant]
     Active Substance: ALPRAZOLAM
     Dosage: UNK
     Dates: start: 20140123, end: 20140123
  31. MAXIPIME [Concomitant]
     Active Substance: CEFEPIME HYDROCHLORIDE
     Dosage: UNK
     Dates: start: 20140125, end: 20140127
  32. PANTOL [Concomitant]
     Active Substance: DEXPANTHENOL
     Dosage: UNK
     Dates: start: 20140127, end: 20140201
  33. EMEND [Concomitant]
     Active Substance: APREPITANT
     Dosage: UNK
     Dates: start: 20140117, end: 20140119
  34. PANTETHINE [Concomitant]
     Active Substance: PANTETHINE
     Dosage: UNK
     Dates: start: 20140117, end: 20140119
  35. DEPAS [Concomitant]
     Active Substance: ETIZOLAM
     Dosage: UNK
     Dates: start: 20140117, end: 20140119
  36. PRIMPERAN [Concomitant]
     Active Substance: METOCLOPRAMIDE HYDROCHLORIDE
     Dosage: UNK
     Dates: start: 20140117, end: 20140129
  37. SOLDACTONE [Concomitant]
     Active Substance: CANRENOATE POTASSIUM
     Dosage: UNK
     Dates: start: 20140127, end: 20140127

REACTIONS (15)
  - Diarrhoea [Recovered/Resolved]
  - Decreased appetite [Unknown]
  - Pancreatic carcinoma metastatic [Fatal]
  - Pneumonia aspiration [Fatal]
  - Febrile neutropenia [Recovered/Resolved]
  - Hyperglycaemia [Unknown]
  - Ileus [Recovering/Resolving]
  - Disease progression [Fatal]
  - Hypokalaemia [Unknown]
  - Pyrexia [Unknown]
  - Nausea [Unknown]
  - Fatigue [Unknown]
  - Respiratory failure [Fatal]
  - Vomiting [Unknown]
  - Hyponatraemia [Unknown]

NARRATIVE: CASE EVENT DATE: 20140117
